FAERS Safety Report 6283221-5 (Version None)
Quarter: 2009Q3

REPORT INFORMATION
  Report Type: 
  Country: None (occurrence: None)
  Receive Date: 20090724
  Receipt Date: 20090715
  Transmission Date: 20100115
  Serious: Yes (Hospitalization)
  Sender: FDA-Public Use
  Company Number: US-JNJFOC-20090706137

PATIENT
  Sex: Male
  Weight: 41.7 kg

DRUGS (11)
  1. INFLIXIMAB [Suspect]
     Route: 042
  2. INFLIXIMAB [Suspect]
     Route: 042
  3. INFLIXIMAB [Suspect]
     Route: 042
  4. INFLIXIMAB [Suspect]
     Indication: CROHN'S DISEASE
     Route: 042
  5. METHOTREXATE [Concomitant]
     Indication: INFLAMMATORY BOWEL DISEASE
  6. COLAZAL [Concomitant]
  7. FERROUS SULFATE TAB [Concomitant]
  8. LISINOPRIL [Concomitant]
  9. RISPERDAL [Concomitant]
  10. CONCERTA [Concomitant]
  11. METRONIDAZOLE [Concomitant]

REACTIONS (1)
  - CROHN'S DISEASE [None]
